FAERS Safety Report 8740449 (Version 2)
Quarter: 2013Q4

REPORT INFORMATION
  Report Type: Spontaneous
  Country: US (occurrence: US)
  Receive Date: 20120823
  Receipt Date: 20131101
  Transmission Date: 20140711
  Serious: No
  Sender: FDA-Public Use
  Company Number: US-009507513-1208USA005410

PATIENT
  Age: 20 Year
  Sex: Female
  Weight: 55.78 kg

DRUGS (4)
  1. NUVARING [Suspect]
     Indication: CONTRACEPTION
     Dosage: UNK
     Route: 067
     Dates: start: 201201
  2. VITAMINS (UNSPECIFIED) [Concomitant]
  3. OMEGA-3 MARINE TRIGLYCERIDES [Concomitant]
  4. VITAMIN D (UNSPECIFIED) [Concomitant]

REACTIONS (2)
  - Metrorrhagia [Unknown]
  - Dysmenorrhoea [Unknown]
